FAERS Safety Report 21099964 (Version 5)
Quarter: 2022Q3

REPORT INFORMATION
  Report Type: Report from Study
  Country: PA (occurrence: PA)
  Receive Date: 20220719
  Receipt Date: 20220906
  Transmission Date: 20221026
  Serious: Yes (Other)
  Sender: FDA-Public Use
  Company Number: PA-NOVARTISPH-NVSC2022PA160291

PATIENT
  Age: 74 Year
  Sex: Female

DRUGS (7)
  1. KISQALI [Suspect]
     Active Substance: RIBOCICLIB
     Indication: Breast cancer metastatic
     Dosage: 600 MG, TID
     Route: 048
     Dates: start: 202204, end: 202205
  2. KISQALI [Suspect]
     Active Substance: RIBOCICLIB
     Dosage: 400 MG, QD, 2 (400MG)
     Route: 048
     Dates: start: 20220401
  3. KISQALI [Suspect]
     Active Substance: RIBOCICLIB
     Dosage: 400 MG, QD, 2 (400MG)
     Route: 048
     Dates: start: 202206
  4. KISQALI [Suspect]
     Active Substance: RIBOCICLIB
     Dosage: 400 MG, QD (2 TABLETS)
     Route: 048
  5. KISQALI [Suspect]
     Active Substance: RIBOCICLIB
     Dosage: UNK, QD (3 TABLETS)
     Route: 048
  6. KISQALI [Suspect]
     Active Substance: RIBOCICLIB
     Dosage: 400 MG, QD
     Route: 048
     Dates: start: 202204, end: 202208
  7. GABAPENTIN [Suspect]
     Active Substance: GABAPENTIN
     Indication: Product used for unknown indication
     Dosage: UNK
     Route: 065

REACTIONS (20)
  - Metastases to bone [Recovering/Resolving]
  - Metastases to liver [Recovering/Resolving]
  - Metastases to kidney [Recovering/Resolving]
  - Metastases to heart [Recovering/Resolving]
  - Feeding disorder [Unknown]
  - Depression [Unknown]
  - Speech disorder [Recovering/Resolving]
  - General physical health deterioration [Unknown]
  - Renal disorder [Unknown]
  - Illness [Recovering/Resolving]
  - Back pain [Unknown]
  - Vomiting [Recovering/Resolving]
  - Feeling abnormal [Unknown]
  - Glossodynia [Unknown]
  - Drug intolerance [Unknown]
  - Fatigue [Unknown]
  - Dizziness [Unknown]
  - Malaise [Unknown]
  - Incorrect dose administered [Unknown]
  - Inappropriate schedule of product administration [Unknown]

NARRATIVE: CASE EVENT DATE: 20220401
